FAERS Safety Report 10977656 (Version 2)
Quarter: 2025Q2

REPORT INFORMATION
  Report Type: Report from Study
  Country: US (occurrence: US)
  Receive Date: 20150402
  Receipt Date: 20250506
  Transmission Date: 20250717
  Serious: Yes (Other)
  Sender: ROCHE
  Company Number: US-GENENTECH-288007

PATIENT
  Age: 81 Year
  Sex: Female

DRUGS (1)
  1. BEVACIZUMAB [Suspect]
     Active Substance: BEVACIZUMAB
     Indication: Age-related macular degeneration
     Route: 050

REACTIONS (3)
  - Tachyphylaxis [Unknown]
  - Off label use [Unknown]
  - Off label use [Unknown]
